FAERS Safety Report 14475768 (Version 1)
Quarter: 2018Q1

REPORT INFORMATION
  Report Type: Not Available
  Country: US (occurrence: US)
  Receive Date: 20180201
  Receipt Date: 20180201
  Transmission Date: 20180509
  Serious: Yes (Other)
  Sender: FDA-Public Use
  Company Number: US-FOUNDATIONCONSUMERHC-2018-US-001144

PATIENT
  Age: 40 Year
  Sex: Male
  Weight: 80 kg

DRUGS (2)
  1. UNSPECIFIED MEDICATION FOR TYPE II DIABETES [Concomitant]
  2. BRONKAID DUAL ACTION FORMULA [Suspect]
     Active Substance: EPHEDRINE SULFATE\GUAIFENESIN
     Dosage: 1 TABLET EVERY 6 HOURS
     Route: 048
     Dates: start: 201801, end: 201801

REACTIONS (5)
  - Dyspnoea [Unknown]
  - Hyperglycaemia [Unknown]
  - Dizziness [Unknown]
  - Heart rate increased [Unknown]
  - Throat irritation [Unknown]

NARRATIVE: CASE EVENT DATE: 201801
